FAERS Safety Report 6235678-3 (Version None)
Quarter: 2009Q2

REPORT INFORMATION
  Report Type: 
  Country: None (occurrence: None)
  Receive Date: 20090616
  Receipt Date: 20090609
  Transmission Date: 20091009
  Serious: Yes (Other)
  Sender: FDA-Public Use
  Company Number: SPV1-2009-01203

PATIENT

DRUGS (2)
  1. CARBATROL [Suspect]
  2. TAMIFLU [Suspect]

REACTIONS (1)
  - CONVULSION [None]
